FAERS Safety Report 13659759 (Version 1)
Quarter: 2017Q2

REPORT INFORMATION
  Report Type: Spontaneous
  Country: US (occurrence: US)
  Receive Date: 20170616
  Receipt Date: 20170616
  Transmission Date: 20170830
  Serious: Yes (Life-Threatening, Hospitalization)
  Sender: FDA-Public Use
  Company Number: None

PATIENT
  Age: 58 Year
  Sex: Male

DRUGS (2)
  1. GADAVIST [Suspect]
     Active Substance: GADOBUTROL
     Indication: SYNCOPE
     Dosage: 10 ML OVER 1 MINUTE?10 ML X1 INJECTION
     Dates: start: 20170603, end: 20170603
  2. GADAVIST [Suspect]
     Active Substance: GADOBUTROL
     Indication: FALL
     Dosage: 10 ML OVER 1 MINUTE?10 ML X1 INJECTION
     Dates: start: 20170603, end: 20170603

REACTIONS (3)
  - Urticaria [None]
  - Cardio-respiratory arrest [None]
  - Dyspnoea [None]

NARRATIVE: CASE EVENT DATE: 20170603
